FAERS Safety Report 11804098 (Version 1)
Quarter: 2015Q4

REPORT INFORMATION
  Report Type: Spontaneous
  Country: US (occurrence: US)
  Receive Date: 20151204
  Receipt Date: 20151204
  Transmission Date: 20160305
  Serious: No
  Sender: FDA-Public Use
  Company Number: US-BAUSCH-BL-2014-009211

PATIENT
  Sex: Female

DRUGS (4)
  1. XENAZINE [Suspect]
     Active Substance: TETRABENAZINE
     Indication: HUNTINGTON^S DISEASE
     Dosage: ? TABLET DAILY
     Route: 048
     Dates: start: 201410
  2. VALIUM [Concomitant]
     Active Substance: DIAZEPAM
     Indication: PRODUCT USED FOR UNKNOWN INDICATION
  3. XENAZINE [Suspect]
     Active Substance: TETRABENAZINE
     Route: 048
     Dates: start: 2014
  4. XENAZINE [Suspect]
     Active Substance: TETRABENAZINE
     Dosage: ? TABLET TWICE A DAY
     Route: 048

REACTIONS (5)
  - Depressed mood [Not Recovered/Not Resolved]
  - Hypoaesthesia [Recovered/Resolved]
  - Drug administration error [Unknown]
  - Diarrhoea [Not Recovered/Not Resolved]
  - Tremor [Recovered/Resolved]

NARRATIVE: CASE EVENT DATE: 2014
